FAERS Safety Report 8638790 (Version 2)
Quarter: 2013Q2

REPORT INFORMATION
  Report Type: Spontaneous
  Country: US (occurrence: US)
  Receive Date: 20120627
  Receipt Date: 20130514
  Transmission Date: 20140414
  Serious: Yes (Other)
  Sender: FDA-Public Use
  Company Number: US-ELI_LILLY_AND_COMPANY-US201109005789

PATIENT
  Age: 59 Year
  Sex: Female

DRUGS (18)
  1. FORTEO [Suspect]
     Indication: OSTEOPOROSIS
     Dosage: 20 UG, QD
     Route: 065
     Dates: start: 20110914
  2. FORTEO [Suspect]
     Dosage: 20 UG, QD
  3. FORTEO [Suspect]
     Dosage: 20 UG, QD
  4. WELLBUTRIN [Concomitant]
     Dosage: 100 MG, TID
  5. GABAPENTIN [Concomitant]
     Dosage: 300 MG, TID
  6. EFFEXOR [Concomitant]
     Dosage: 75 MG, QD
  7. PILOCARPINE [Concomitant]
     Dosage: 7.5 MG, TID
  8. TOPIRAMATE [Concomitant]
     Dosage: 50 MG, UNK
  9. MULTIVITAMIN [Concomitant]
     Dosage: UNK
  10. VITAMIN B12 [Concomitant]
     Dosage: UNK
  11. CO-Q10 [Concomitant]
     Dosage: UNK
  12. CALCIUM [Concomitant]
     Dosage: UNK
  13. VITAMIN D [Concomitant]
     Dosage: UNK
  14. XANAX [Concomitant]
     Dosage: 0.5 MG, PRN
  15. FLEXERIL [Concomitant]
     Dosage: 10 MG, PRN
  16. KETOROLAC [Concomitant]
     Dosage: UNK
  17. BUTALBITAL [Concomitant]
     Dosage: UNK
  18. VERAPAMIL [Concomitant]
     Dosage: UNK

REACTIONS (9)
  - Transient ischaemic attack [Recovered/Resolved]
  - Incorrect dose administered [Recovered/Resolved]
  - Nervousness [Recovered/Resolved]
  - Fatigue [Recovered/Resolved]
  - Malaise [Recovered/Resolved]
  - Hypoaesthesia [Not Recovered/Not Resolved]
  - Hypoaesthesia oral [Recovered/Resolved]
  - VIIth nerve paralysis [Recovered/Resolved]
  - Migraine [Unknown]
